FAERS Safety Report 21200123 (Version 1)
Quarter: 2022Q3

REPORT INFORMATION
  Report Type: Spontaneous
  Country: US (occurrence: None)
  Receive Date: 20220810
  Receipt Date: 20220810
  Transmission Date: 20221026
  Serious: No
  Sender: FDA-Public Use
  Company Number: None

PATIENT
  Age: 50 Year
  Sex: Female
  Weight: 58.5 kg

DRUGS (5)
  1. CAPLYTA [Suspect]
     Active Substance: LUMATEPERONE
     Dosage: OTHER QUANTITY : 1 CAPSULE(S);?FREQUENCY : DAILY;?
     Route: 048
     Dates: start: 20220805, end: 20220806
  2. LEVOTHYROXINE [Concomitant]
  3. LAMOTRIGINE [Concomitant]
     Active Substance: LAMOTRIGINE
  4. CLONAZEPAM [Concomitant]
     Active Substance: CLONAZEPAM
  5. LISINOPRIL [Concomitant]
     Active Substance: LISINOPRIL

REACTIONS (3)
  - Urinary retention [None]
  - Dizziness [None]
  - Pyrexia [None]

NARRATIVE: CASE EVENT DATE: 20220805
